FAERS Safety Report 13467148 (Version 1)
Quarter: 2017Q2

REPORT INFORMATION
  Report Type: Report from Study
  Country: ID (occurrence: ID)
  Receive Date: 20170421
  Receipt Date: 20170421
  Transmission Date: 20170830
  Serious: Yes (Death, Life-Threatening, Hospitalization, Other)
  Sender: FDA-Public Use
  Company Number: ID-BAYER-2017-070130

PATIENT
  Age: 60 Year
  Sex: Male

DRUGS (2)
  1. NEXAVAR [Suspect]
     Active Substance: SORAFENIB
     Indication: HEPATOCELLULAR CARCINOMA
     Dosage: 200 MG, UNK
     Route: 048
     Dates: start: 201702, end: 201702
  2. NEXAVAR [Suspect]
     Active Substance: SORAFENIB
     Indication: HEPATOCELLULAR CARCINOMA
     Dosage: 200 MG, QD
     Route: 048
     Dates: start: 201612, end: 201702

REACTIONS (5)
  - Blood bilirubin increased [Recovered/Resolved]
  - Renal failure [Fatal]
  - Hyperbilirubinaemia [Fatal]
  - Hepatic failure [None]
  - Condition aggravated [None]

NARRATIVE: CASE EVENT DATE: 201702
